FAERS Safety Report 7424111-1 (Version None)
Quarter: 2011Q2

REPORT INFORMATION
  Report Type: 
  Country: None (occurrence: None)
  Receive Date: 20110419
  Receipt Date: 20110414
  Transmission Date: 20111010
  Serious: Yes (Hospitalization)
  Sender: FDA-Public Use
  Company Number: ES-AMGEN-ESPCT2011017604

PATIENT
  Age: 62 Year
  Sex: Male

DRUGS (9)
  1. PANITUMUMAB [Suspect]
     Indication: COLORECTAL CANCER
     Dosage: 6 MG/KG, Q2WK
     Route: 042
     Dates: start: 20110328
  2. COROPRES [Concomitant]
     Dosage: 0.25 MG, BID
     Route: 048
     Dates: start: 19940101
  3. ADALAT [Concomitant]
     Dosage: 30 MG, QD
     Route: 048
     Dates: start: 19940101
  4. LEUCOVORIN [Concomitant]
     Indication: COLORECTAL CANCER
     Dosage: 400 MG/M2, Q2WK
     Route: 042
     Dates: start: 20110328
  5. FLUOROURACIL [Concomitant]
     Indication: COLORECTAL CANCER
     Dosage: UNK UNK, Q2WK
     Route: 042
     Dates: start: 20110328
  6. OXALIPLATIN [Concomitant]
     Indication: COLORECTAL CANCER
     Dosage: 85 MG/M2, Q2WK
     Route: 042
     Dates: start: 20110328
  7. OMEPRAZOLE [Concomitant]
     Dosage: 20 MG, QD
     Route: 048
  8. OMNIC [Concomitant]
     Dosage: 0.4 MG, QD
     Route: 048
     Dates: start: 19970101
  9. VENLAFAXINE HCL [Concomitant]
     Dosage: 0.75 MG, QD
     Route: 048
     Dates: end: 20000101

REACTIONS (2)
  - GENERAL PHYSICAL HEALTH DETERIORATION [None]
  - AMAUROSIS FUGAX [None]
